FAERS Safety Report 6435380-9 (Version None)
Quarter: 2009Q4

REPORT INFORMATION
  Report Type: 
  Country: None (occurrence: None)
  Receive Date: 20091110
  Receipt Date: 20091028
  Transmission Date: 20100525
  Serious: Yes (Other)
  Sender: FDA-Public Use
  Company Number: BR-GENENTECH-291669

PATIENT
  Age: 87 Year
  Sex: Female

DRUGS (2)
  1. HERCEPTIN [Suspect]
     Indication: BREAST CANCER METASTATIC
     Dosage: 270 MG, Q21D
     Route: 065
     Dates: start: 20090220
  2. XELODA [Suspect]
     Indication: BREAST CANCER METASTATIC
     Dosage: 4 DF, UNK
     Route: 048
     Dates: start: 20090220

REACTIONS (3)
  - AGITATION [None]
  - HALLUCINATION [None]
  - VERTIGO [None]
